FAERS Safety Report 7396368-7 (Version None)
Quarter: 2011Q2

REPORT INFORMATION
  Report Type: 
  Country: None (occurrence: None)
  Receive Date: 20110406
  Receipt Date: 20091130
  Transmission Date: 20111010
  Serious: Yes (Death, Other)
  Sender: FDA-Public Use
  Company Number: US-BAYER-200941221NA

PATIENT
  Sex: Male
  Weight: 99.773 kg

DRUGS (26)
  1. HUMULIN [INSULIN HUMAN] [Concomitant]
     Dosage: 70/30 - 40 U QAM
  2. TRASYLOL [Suspect]
     Indication: CORONARY ARTERY BYPASS
  3. HUMAN RED BLOOD CELLS [Concomitant]
     Dosage: 4 U, UNK
     Dates: start: 20070320
  4. THIAMINE [Concomitant]
     Dosage: 100 MG, UNK
  5. PANCURONIUM BROMIDE [Concomitant]
     Dosage: UNK
     Dates: start: 20070322
  6. MOEXIPRIL HYDROCHLORIDE [Concomitant]
  7. MOTRIN [Concomitant]
  8. LIPITOR [Concomitant]
     Dosage: 10 MG, UNK
  9. HEPARIN [Concomitant]
     Dosage: 350000 U, UNK
     Route: 042
     Dates: start: 20070322
  10. AMIODARONE HCL [Concomitant]
     Dosage: UNK
     Dates: start: 20070322
  11. TERAZOSIN [Concomitant]
     Dosage: 5 MG, UNK
  12. SORBITOL [Concomitant]
     Dosage: 30 MG, UNK
  13. PROTAMINE SULFATE [Concomitant]
     Dosage: 45 U, UNK
  14. ATORVASTATIN CALCIUM [Concomitant]
  15. AMICAR [Concomitant]
     Dosage: 5.2 G, UNK
  16. PLASMA [Concomitant]
     Dosage: 3 U, UNK
     Dates: start: 20070320
  17. PLATELETS [Concomitant]
     Dosage: UNK
     Dates: start: 20070320
  18. ACETYLSALICYLIC ACID SRT [Concomitant]
     Dosage: 325 MG, UNK
  19. ADVAIR DISKUS 100/50 [Concomitant]
     Dosage: UNK UNK, PRN
  20. METOPROLOL [Concomitant]
  21. MELOXICAM [Concomitant]
  22. ATENOLOL [Concomitant]
     Dosage: 50 MG, UNK
  23. MANNITOL [Concomitant]
     Dosage: UNK
     Dates: start: 20070322
  24. PROTAMINE SULFATE [Concomitant]
     Dosage: 500 MG, UNK
     Route: 042
     Dates: start: 20070322
  25. TRASYLOL [Suspect]
     Indication: AORTIC VALVE REPLACEMENT
     Dosage: UNK
     Route: 042
     Dates: start: 20070322
  26. MULTI-VITAMIN [Concomitant]

REACTIONS (13)
  - DEATH [None]
  - RENAL FAILURE [None]
  - INJURY [None]
  - UNEVALUABLE EVENT [None]
  - PAIN [None]
  - RENAL INJURY [None]
  - FEAR [None]
  - ANHEDONIA [None]
  - STRESS [None]
  - MULTI-ORGAN FAILURE [None]
  - ANXIETY [None]
  - RENAL IMPAIRMENT [None]
  - EMOTIONAL DISTRESS [None]
